FAERS Safety Report 20208854 (Version 1)
Quarter: 2021Q4

REPORT INFORMATION
  Report Type: Spontaneous
  Country: US (occurrence: None)
  Receive Date: 20211220
  Receipt Date: 20211220
  Transmission Date: 20220303
  Serious: Yes (Other)
  Sender: FDA-Public Use
  Company Number: None

PATIENT
  Age: 50 Year
  Sex: Male
  Weight: 116.6 kg

DRUGS (1)
  1. REGEN-COV [Suspect]
     Active Substance: CASIRIVIMAB\IMDEVIMAB
     Indication: COVID-19
     Dosage: OTHER FREQUENCY : ONCE;?
     Route: 042
     Dates: start: 20211216, end: 20211216

REACTIONS (9)
  - Dizziness [None]
  - Feeling hot [None]
  - Pallor [None]
  - Hyperhidrosis [None]
  - Infusion related reaction [None]
  - Eye movement disorder [None]
  - Syncope [None]
  - Snoring [None]
  - Blood pressure decreased [None]

NARRATIVE: CASE EVENT DATE: 20211216
